FAERS Safety Report 8816891 (Version 2)
Quarter: 2013Q1

REPORT INFORMATION
  Report Type: Spontaneous
  Country: BR (occurrence: None)
  Receive Date: 20121002
  Receipt Date: 20130318
  Transmission Date: 20140127
  Serious: Yes (Other)
  Sender: FDA-Public Use
  Company Number: ENTC2012-0427

PATIENT
  Age: 82 Year
  Sex: Female

DRUGS (3)
  1. STALEVO [Suspect]
     Indication: PARKINSON^S DISEASE
     Dosage: 50/12.5/200MG 1 DOSAGE FORM, 2 IN 1 D
  2. MANTIDAN [Concomitant]
  3. PROLOPA [Concomitant]

REACTIONS (1)
  - Haematemesis [None]
